FAERS Safety Report 19665136 (Version 2)
Quarter: 2021Q4

REPORT INFORMATION
  Report Type: Spontaneous
  Country: US (occurrence: US)
  Receive Date: 20210805
  Receipt Date: 20211208
  Transmission Date: 20220304
  Serious: Yes (Other)
  Sender: FDA-Public Use
  Company Number: US-GILEAD-2021-0542385

PATIENT
  Age: 56 Year
  Sex: Male
  Weight: 77.11 kg

DRUGS (36)
  1. ATRIPLA [Suspect]
     Active Substance: EFAVIRENZ\EMTRICITABINE\TENOFOVIR DISOPROXIL FUMARATE
     Indication: HIV infection
     Dosage: UNK
     Route: 048
     Dates: start: 2008
  2. ATRIPLA [Suspect]
     Active Substance: EFAVIRENZ\EMTRICITABINE\TENOFOVIR DISOPROXIL FUMARATE
     Dosage: UNK
     Route: 048
     Dates: start: 2012, end: 2015
  3. ATRIPLA [Suspect]
     Active Substance: EFAVIRENZ\EMTRICITABINE\TENOFOVIR DISOPROXIL FUMARATE
     Dosage: UNK
     Route: 048
     Dates: start: 2015, end: 2016
  4. TRUVADA [Suspect]
     Active Substance: EMTRICITABINE\TENOFOVIR DISOPROXIL FUMARATE
     Indication: HIV infection
     Dosage: UNK
     Route: 048
     Dates: start: 200805, end: 2011
  5. TRUVADA [Suspect]
     Active Substance: EMTRICITABINE\TENOFOVIR DISOPROXIL FUMARATE
     Dosage: UNK
     Route: 048
     Dates: start: 2011, end: 2012
  6. GENVOYA [Concomitant]
     Active Substance: COBICISTAT\ELVITEGRAVIR\EMTRICITABINE\TENOFOVIR ALAFENAMIDE FUMARATE
  7. BIKTARVY [Concomitant]
     Active Substance: BICTEGRAVIR SODIUM\EMTRICITABINE\TENOFOVIR ALAFENAMIDE FUMARATE
  8. NORVIR [Concomitant]
     Active Substance: RITONAVIR
  9. REYATAZ [Concomitant]
     Active Substance: ATAZANAVIR SULFATE
  10. ALBUTEROL [Concomitant]
     Active Substance: ALBUTEROL
  11. ALLOPURINOL [Concomitant]
     Active Substance: ALLOPURINOL
  12. AMLODIPINE [Concomitant]
     Active Substance: AMLODIPINE BESYLATE
  13. AMOXICILLIN [Concomitant]
     Active Substance: AMOXICILLIN
  14. CARVEDILOL [Concomitant]
     Active Substance: CARVEDILOL
  15. CLOBETASOL [Concomitant]
     Active Substance: CLOBETASOL
  16. CLONIDINE [Concomitant]
     Active Substance: CLONIDINE
  17. COLCHICINE [Concomitant]
     Active Substance: COLCHICINE
  18. CYCLOBENZAPRINE [Concomitant]
     Active Substance: CYCLOBENZAPRINE
  19. DICLOFENAC [Concomitant]
     Active Substance: DICLOFENAC
  20. DOXAZOSIN [Concomitant]
     Active Substance: DOXAZOSIN MESYLATE
  21. HALOBETASOL PROPIONATE [Concomitant]
     Active Substance: HALOBETASOL PROPIONATE
  22. HYDRALAZINE [Concomitant]
     Active Substance: HYDRALAZINE HYDROCHLORIDE
  23. HYDROCODONE [Concomitant]
     Active Substance: HYDROCODONE
  24. LOSARTAN [Concomitant]
     Active Substance: LOSARTAN
  25. LUMIGAN [Concomitant]
     Active Substance: BIMATOPROST
  26. MELOXICAM [Concomitant]
     Active Substance: MELOXICAM
  27. METRONIDAZOLE [Concomitant]
     Active Substance: METRONIDAZOLE
  28. NAPROXEN [Concomitant]
     Active Substance: NAPROXEN
  29. NIFEDIPINE [Concomitant]
     Active Substance: NIFEDIPINE
  30. OXYCODONE [Concomitant]
     Active Substance: OXYCODONE
  31. PREDNISONE [Concomitant]
     Active Substance: PREDNISONE
  32. PROAIR HFA [Concomitant]
     Active Substance: ALBUTEROL SULFATE
  33. PROVENTIL [Concomitant]
     Active Substance: ALBUTEROL
  34. TAMSULOSIN [Concomitant]
     Active Substance: TAMSULOSIN
  35. VITAMIN D NOS [Concomitant]
     Active Substance: VITAMIN D NOS
  36. VITAMIN D2 [Concomitant]
     Active Substance: ERGOCALCIFEROL

REACTIONS (9)
  - Chronic kidney disease [Not Recovered/Not Resolved]
  - Pain [Not Recovered/Not Resolved]
  - Emotional distress [Not Recovered/Not Resolved]
  - Anxiety [Not Recovered/Not Resolved]
  - Anhedonia [Not Recovered/Not Resolved]
  - Skin discolouration [Unknown]
  - Renal impairment [Not Recovered/Not Resolved]
  - Asthma [Unknown]
  - Depression [Recovered/Resolved]

NARRATIVE: CASE EVENT DATE: 20150101
